FAERS Safety Report 19089312 (Version 1)
Quarter: 2021Q2

REPORT INFORMATION
  Report Type: Spontaneous
  Country: US (occurrence: US)
  Receive Date: 20210403
  Receipt Date: 20210403
  Transmission Date: 20210717
  Serious: Yes (Hospitalization, Other)
  Sender: FDA-Public Use
  Company Number: US-ACCORD-221796

PATIENT
  Age: 51 Year
  Sex: Female

DRUGS (11)
  1. DIAZEPAM. [Concomitant]
     Active Substance: DIAZEPAM
     Dosage: 5 MG THREE TIMES A DAY AS NEEDED
  2. METOPROLOL. [Concomitant]
     Active Substance: METOPROLOL
     Dosage: 12.5 MG TWICE A DAY
  3. BACLOFEN. [Concomitant]
     Active Substance: BACLOFEN
     Dosage: 10 MG?TWICE A DAY
  4. ASPIRIN. [Concomitant]
     Active Substance: ASPIRIN
  5. ESOMEPRAZOLE/ESOMEPRAZOLE MAGNESIUM/ESOMEPRAZOLE SODIUM [Concomitant]
     Active Substance: ESOMEPRAZOLE
     Dosage: 40 MG TWICE A DAY
  6. METOPROLOL. [Concomitant]
     Active Substance: METOPROLOL
     Dosage: 12.5 MG TWICE A DAY
  7. ONDANSETRON [Concomitant]
     Active Substance: ONDANSETRON
     Dosage: 8 MG THREE TIMES A DAY AS NEEDED,
  8. LINACLOTIDE [Concomitant]
     Active Substance: LINACLOTIDE
     Dosage: 20 MCG ORAL DAILY
     Route: 048
  9. TOPIRAMATE. [Suspect]
     Active Substance: TOPIRAMATE
     Indication: MIGRAINE
     Dosage: 300 MG TWICE A DAY (INCREASED FROM 200 MG TWICE A DAY).
  10. SALBUTAMOL [Concomitant]
     Active Substance: ALBUTEROL
     Indication: DYSPNOEA
     Dosage: TWO PUFFS EVERY FOUR HOURS AS NEEDED
  11. FAMOTIDINE. [Concomitant]
     Active Substance: FAMOTIDINE
     Dosage: 40 MG?DAILY

REACTIONS (1)
  - Coronary artery dissection [Recovered/Resolved]
